FAERS Safety Report 8618909-1 (Version None)
Quarter: 2012Q3

REPORT INFORMATION
  Report Type: 
  Country: None (occurrence: None)
  Receive Date: 20120824
  Receipt Date: 20120822
  Transmission Date: 20120928
  Serious: Yes (Other)
  Sender: FDA-Public Use
  Company Number: US-PFIZER INC-2012206397

PATIENT
  Age: 49 Year
  Sex: Female
  Weight: 79 kg

DRUGS (10)
  1. ZOLOFT [Suspect]
     Route: 048
  2. ZOLOFT [Suspect]
     Indication: DEPRESSION
     Dosage: 100 MG, 1X/DAY
     Route: 048
     Dates: start: 20010101
  3. ZOLOFT [Suspect]
     Dosage: 100 MG, 1X/DAY
     Route: 048
  4. BUPROPION [Concomitant]
     Dosage: 150 MG, 2X/DAY
  5. SPIRIVA [Concomitant]
     Dosage: UNK
  6. DILTIAZEM [Concomitant]
     Dosage: 120 MG, 3X/DAY
  7. HYDROCODONE BITARTRATE + ACETAMINOPHEN [Concomitant]
     Dosage: 7.5/325 MG, UNK
  8. SIMVASTATIN [Concomitant]
     Dosage: 40 MG, 1X/DAY
  9. NIASPAN [Concomitant]
     Dosage: 500 MG, 1X/DAY
  10. SOMA [Concomitant]
     Dosage: 350 MG, UNK

REACTIONS (8)
  - DEPRESSION [None]
  - SOMNOLENCE [None]
  - JOINT INJURY [None]
  - FALL [None]
  - CRYING [None]
  - GAIT DISTURBANCE [None]
  - ARTHRALGIA [None]
  - NICOTINAMIDE DECREASED [None]
